FAERS Safety Report 12360656 (Version 2)
Quarter: 2016Q2

REPORT INFORMATION
  Report Type: Spontaneous
  Country: LV (occurrence: LV)
  Receive Date: 20160512
  Receipt Date: 20160518
  Transmission Date: 20160815
  Serious: Yes (Death)
  Sender: FDA-Public Use
  Company Number: LV-ELI_LILLY_AND_COMPANY-LV201605004090

PATIENT
  Age: 54 Year
  Sex: Male

DRUGS (4)
  1. DICLOMELAN [Concomitant]
     Indication: ORAL PAIN
     Dosage: UNK, UNKNOWN
  2. ERBITUX [Suspect]
     Active Substance: CETUXIMAB
     Indication: HEAD AND NECK CANCER
     Dosage: 400 MG/M2, SINGLE
     Route: 065
     Dates: start: 20160322
  3. ERBITUX [Suspect]
     Active Substance: CETUXIMAB
     Dosage: 250 MG/M2, WEEKLY (1/W)
     Route: 065
     Dates: end: 20160503
  4. TRAMADOL. [Concomitant]
     Active Substance: TRAMADOL
     Indication: ORAL PAIN
     Dosage: UNK, UNKNOWN
     Route: 065

REACTIONS (1)
  - Sudden death [Fatal]
